FAERS Safety Report 21383713 (Version 1)
Quarter: 2022Q3

REPORT INFORMATION
  Report Type: Spontaneous
  Country: DE (occurrence: DE)
  Receive Date: 20220928
  Receipt Date: 20220928
  Transmission Date: 20221027
  Serious: Yes (Hospitalization)
  Sender: FDA-Public Use
  Company Number: DE-ADRED-07947-01

PATIENT
  Age: 84 Year
  Sex: Female

DRUGS (6)
  1. SITAGLIPTIN PHOSPHATE [Suspect]
     Active Substance: SITAGLIPTIN PHOSPHATE
     Dosage: 100 MG, 1-0-0-0, TABLET
     Route: 048
  2. INDAPAMIDE\PERINDOPRIL [Suspect]
     Active Substance: INDAPAMIDE\PERINDOPRIL
     Dosage: 1.25|3.395 MG, 1-0-0-0, TABLETS
     Route: 048
  3. PIRACETAM [Suspect]
     Active Substance: PIRACETAM
     Dosage: 800 MG, 1-0-0-0, TABLET
     Route: 048
  4. ASPIRIN [Concomitant]
     Active Substance: ASPIRIN
     Dosage: 100 MG, 1-0-0-0, TABLET
     Route: 048
  5. LEVOTHYROXINE SODIUM [Concomitant]
     Active Substance: LEVOTHYROXINE SODIUM
     Dosage: 0.1 MG, 1-0-0-0, TABLET
     Route: 048
  6. BISOPROLOL [Concomitant]
     Active Substance: BISOPROLOL
     Dosage: 2.5 MG, 0-1-0-0, TABLET
     Route: 048

REACTIONS (2)
  - Muscular weakness [Unknown]
  - Hypoaesthesia [Unknown]
